FAERS Safety Report 8390980 (Version 9)
Quarter: 2012Q4

REPORT INFORMATION
  Report Type: 
  Country: US (occurrence: US)
  Receive Date: 20120206
  Receipt Date: 20121102
  Transmission Date: 20130627
  Serious: Yes (Hospitalization, Other)
  Sender: FDA-Public Use
  Company Number: US-ELI_LILLY_AND_COMPANY-US201201008071

PATIENT
  Age: 58 None
  Sex: Female

DRUGS (13)
  1. FORTEO [Suspect]
     Indication: OSTEOPOROSIS
     Dosage: 20 ug, qd
     Dates: start: 201110
  2. FORTEO [Suspect]
     Dosage: 20 ug, qd
  3. FORTEO [Suspect]
     Dosage: 20 ug, qd
  4. VITAMIN D2 [Concomitant]
     Dosage: 1.25 mg, weekly (1/W)
  5. SERTRALINE HCL [Concomitant]
     Dosage: 50 mg, qd
  6. LEVOTHYROXINE [Concomitant]
     Dosage: 175 ug, qd
  7. MOBIC [Concomitant]
     Dosage: 7.5 mg, bid
  8. GABAPENTIN [Concomitant]
     Dosage: 600 mg, qid
  9. HYDROCODONE W/ACETAMINOPHEN [Concomitant]
     Indication: PAIN
     Dosage: UNK, prn
  10. METOPROLOL [Concomitant]
     Indication: BLOOD PRESSURE
     Dosage: 2.5 mg, bid
  11. ALOPURINOL [Concomitant]
     Indication: GOUT
     Dosage: 300 mg, qd
  12. TRAMADOL HCL [Concomitant]
     Dosage: 100 mg, qid
  13. FLUTICASONE PROPIONATE [Concomitant]
     Dosage: UNK, qd

REACTIONS (21)
  - Hip arthroplasty [Recovering/Resolving]
  - Brain injury [Recovering/Resolving]
  - Surgery [Unknown]
  - Upper limb fracture [Unknown]
  - Fall [Unknown]
  - Infection [Unknown]
  - Hip fracture [Unknown]
  - Device failure [Unknown]
  - Loss of consciousness [Recovered/Resolved]
  - Immune system disorder [Unknown]
  - Malaise [Unknown]
  - Amnesia [Unknown]
  - Influenza [Unknown]
  - Adverse drug reaction [Unknown]
  - Vomiting [Unknown]
  - Diarrhoea [Unknown]
  - Asthenia [Unknown]
  - Joint dislocation [Unknown]
  - Arthropathy [Unknown]
  - Weight decreased [Unknown]
  - Drug dose omission [Unknown]
